FAERS Safety Report 5472975-3 (Version None)
Quarter: 2007Q4

REPORT INFORMATION
  Report Type: 
  Country: None (occurrence: None)
  Receive Date: 20071001
  Receipt Date: 20070130
  Transmission Date: 20080405
  Serious: No
  Sender: FDA-Public Use
  Company Number: US-ASTRAZENECA-2007UW01886

PATIENT
  Age: 64 Year
  Sex: Female
  Weight: 108.9 kg

DRUGS (7)
  1. ARIMIDEX [Suspect]
     Indication: BREAST CANCER STAGE III
     Route: 048
  2. NEURONTIN [Concomitant]
  3. INSULIN [Concomitant]
  4. ASPIRIN [Concomitant]
  5. FLUOXETINE [Concomitant]
  6. METOPROLOL [Concomitant]
     Route: 048
  7. THYROID TAB [Concomitant]

REACTIONS (2)
  - ARTHRALGIA [None]
  - DIABETIC NEUROPATHY [None]
